FAERS Safety Report 6820874-4 (Version None)
Quarter: 2010Q3

REPORT INFORMATION
  Report Type: 
  Country: None (occurrence: None)
  Receive Date: 20100707
  Receipt Date: 20070727
  Transmission Date: 20110219
  Serious: No
  Sender: FDA-Public Use
  Company Number: US-PFIZER INC-2007040427

PATIENT
  Sex: Female
  Weight: 60.78 kg

DRUGS (2)
  1. SERTRALINE [Suspect]
     Indication: PREMENSTRUAL SYNDROME
  2. ZOLOFT [Suspect]
     Indication: PREMENSTRUAL SYNDROME

REACTIONS (1)
  - DRUG INEFFECTIVE [None]
